FAERS Safety Report 5214025-X (Version None)
Quarter: 2007Q1

REPORT INFORMATION
  Report Type: 
  Country: None (occurrence: None)
  Receive Date: 20070122
  Receipt Date: 20070117
  Transmission Date: 20070707
  Serious: Yes (Hospitalization)
  Sender: FDA-Public Use
  Company Number: US-ELI_LILLY_AND_COMPANY-US200609003472

PATIENT
  Age: 37 Year
  Sex: Female
  Weight: 108.84 kg

DRUGS (6)
  1. ZYPREXA [Suspect]
     Indication: DEPRESSION
     Dosage: UNK, 2/D
     Dates: start: 19960101, end: 20030101
  2. ZYPREXA [Suspect]
     Dates: start: 20040101
  3. FLUOXETINE                              /N/A/ [Concomitant]
     Dates: start: 19960101, end: 20030101
  4. PAROXETINE HCL [Concomitant]
     Dates: start: 19960101, end: 20030101
  5. SERTRALINE [Concomitant]
     Dates: start: 19960101, end: 20030101
  6. VENLAFAXINE HCL [Concomitant]
     Dates: start: 19960101, end: 20040101

REACTIONS (4)
  - DIABETES MELLITUS [None]
  - DIABETIC ULCER [None]
  - HYPERTENSION [None]
  - METABOLIC DISORDER [None]
